FAERS Safety Report 4968357-0 (Version None)
Quarter: 2006Q1

REPORT INFORMATION
  Report Type: 
  Country: None (occurrence: None)
  Receive Date: 20060201
  Receipt Date: 20051228
  Transmission Date: 20060701
  Serious: No
  Sender: FDA-Public Use
  Company Number: 2005PV006361

PATIENT
  Age: 45 Year
  Sex: Female
  Weight: 96.6162 kg

DRUGS (3)
  1. BYETTA [Suspect]
     Indication: DIABETES MELLITUS NON-INSULIN-DEPENDENT
     Dosage: SEE IMAGE
     Route: 058
     Dates: start: 20051024, end: 20051123
  2. BYETTA [Suspect]
     Indication: DIABETES MELLITUS NON-INSULIN-DEPENDENT
     Dosage: SEE IMAGE
     Route: 058
     Dates: start: 20051124
  3. AMARYL [Concomitant]

REACTIONS (4)
  - CHILLS [None]
  - DYSPEPSIA [None]
  - FEELING COLD [None]
  - NAUSEA [None]
